FAERS Safety Report 11328055 (Version 1)
Quarter: 2015Q3

REPORT INFORMATION
  Report Type: Spontaneous
  Country: US (occurrence: US)
  Receive Date: 20150731
  Receipt Date: 20150731
  Transmission Date: 20151125
  Serious: Yes (Other)
  Sender: FDA-Public Use
  Company Number: US-JAZZ-2015-US-011208

PATIENT
  Sex: Male

DRUGS (3)
  1. PRIALT [Suspect]
     Active Substance: ZICONOTIDE ACETATE
     Indication: PAIN
  2. DILAUDID [Suspect]
     Active Substance: HYDROMORPHONE HYDROCHLORIDE
     Indication: PAIN
     Dosage: UNK MG, QH
     Route: 037
  3. ALEVE [Concomitant]
     Active Substance: NAPROXEN SODIUM

REACTIONS (1)
  - Gallbladder disorder [Recovered/Resolved]

NARRATIVE: CASE EVENT DATE: 2009
